FAERS Safety Report 19221281 (Version 1)
Quarter: 2021Q2

REPORT INFORMATION
  Report Type: Spontaneous
  Country: US (occurrence: US)
  Receive Date: 20210505
  Receipt Date: 20210505
  Transmission Date: 20210717
  Serious: No
  Sender: FDA-Public Use
  Company Number: US-QOL MEDICAL, LLC-2110239

PATIENT
  Age: 61 Year
  Sex: Female
  Weight: 84.09 kg

DRUGS (4)
  1. HYDROCHLOROTHIAZIDE. [Concomitant]
     Active Substance: HYDROCHLOROTHIAZIDE
  2. CHOLESTYRAMINE. [Concomitant]
     Active Substance: CHOLESTYRAMINE
  3. IRBESARTAN. [Concomitant]
     Active Substance: IRBESARTAN
  4. SUCRAID [Suspect]
     Active Substance: SACROSIDASE
     Indication: SUCRASE-ISOMALTASE DEFICIENCY
     Route: 048
     Dates: start: 20200111, end: 20200111

REACTIONS (1)
  - Insomnia [Recovered/Resolved]

NARRATIVE: CASE EVENT DATE: 20200111
